FAERS Safety Report 25180554 (Version 1)
Quarter: 2025Q2

REPORT INFORMATION
  Report Type: Spontaneous
  Country: RU (occurrence: RU)
  Receive Date: 20250409
  Receipt Date: 20250409
  Transmission Date: 20250716
  Serious: Yes (Other)
  Sender: ELI LILLY AND CO
  Company Number: RU-ELI_LILLY_AND_COMPANY-RU202504005454

PATIENT
  Age: 71 Year
  Sex: Female

DRUGS (2)
  1. CYRAMZA [Suspect]
     Active Substance: RAMUCIRUMAB
     Indication: Adenocarcinoma gastric
     Route: 065
     Dates: start: 20220713
  2. PACLITAXEL [Suspect]
     Active Substance: PACLITAXEL
     Indication: Adenocarcinoma gastric
     Route: 065
     Dates: start: 20220713

REACTIONS (7)
  - Anastomotic ulcer [Unknown]
  - Chronic gastritis [Unknown]
  - Lymphadenopathy [Unknown]
  - Hepatomegaly [Unknown]
  - Hiatus hernia [Unknown]
  - Renal cyst [Unknown]
  - Spleen disorder [Unknown]

NARRATIVE: CASE EVENT DATE: 20230315
